FAERS Safety Report 9986701 (Version 1)
Quarter: 2014Q1

REPORT INFORMATION
  Report Type: Report from Study
  Country: US (occurrence: US)
  Receive Date: 20140307
  Receipt Date: 20140307
  Transmission Date: 20141002
  Serious: No
  Sender: FDA-Public Use
  Company Number: US-ABBVIE-13P-163-1082447-00

PATIENT
  Age: 38 Year
  Sex: Female

DRUGS (13)
  1. HUMIRA [Suspect]
     Indication: CROHN^S DISEASE
     Dates: start: 20120920
  2. ALLEGRA [Concomitant]
     Indication: HYPERSENSITIVITY
  3. FLONASE [Concomitant]
     Indication: PRODUCT USED FOR UNKNOWN INDICATION
     Dosage: 2 PUFFS IN EACH NARE DAILY
     Route: 045
  4. BENTYL [Concomitant]
     Indication: CROHN^S DISEASE
  5. ASACOL [Concomitant]
     Indication: CROHN^S DISEASE
  6. MAXZIDE [Concomitant]
     Indication: HYPERTENSION
  7. PRILOSEC [Concomitant]
     Indication: GASTROOESOPHAGEAL REFLUX DISEASE
     Dosage: 1 DAILY
  8. ONE A DAY VITAMIN [Concomitant]
     Indication: PRODUCT USED FOR UNKNOWN INDICATION
     Dosage: DAILY
  9. COD LIVER OIL [Concomitant]
     Indication: VITAMIN SUPPLEMENTATION
     Dosage: DAILY
  10. COD LIVER OIL [Concomitant]
     Indication: VITAMIN SUPPLEMENTATION
  11. COD LIVER OIL [Concomitant]
     Indication: VITAMIN SUPPLEMENTATION
  12. BIRTH CONTROL PILLS [Concomitant]
     Indication: CONTRACEPTION
     Dosage: DAILY
  13. ANUSOL [Concomitant]
     Indication: HAEMORRHOIDS
     Route: 054

REACTIONS (2)
  - Joint swelling [Not Recovered/Not Resolved]
  - Injection site pruritus [Not Recovered/Not Resolved]
